FAERS Safety Report 9133119 (Version 2)
Quarter: 2013Q1

REPORT INFORMATION
  Report Type: Spontaneous
  Country: US (occurrence: US)
  Receive Date: 20130301
  Receipt Date: 20130318
  Transmission Date: 20140127
  Serious: Yes (Death, Hospitalization)
  Sender: FDA-Public Use
  Company Number: US-B.I. PHARMACEUTICALS,INC./RIDGEFIELD-2013-BI-05167BP

PATIENT
  Age: 9 Decade
  Sex: Female
  Weight: 63.05 kg

DRUGS (4)
  1. PRADAXA [Suspect]
     Indication: ATRIAL FIBRILLATION
     Dosage: 150 MG
     Route: 048
     Dates: start: 20110207, end: 2013
  2. MIDODRINE [Concomitant]
     Dates: end: 201211
  3. MULTAQ [Concomitant]
     Dosage: 400 MG
  4. ARICEPT [Concomitant]
     Dosage: 10 MG

REACTIONS (4)
  - Haemorrhage [Fatal]
  - Gait disturbance [Fatal]
  - Fall [Fatal]
  - Head injury [Fatal]
